FAERS Safety Report 4493174-8 (Version None)
Quarter: 2004Q4

REPORT INFORMATION
  Report Type: 
  Country: None (occurrence: None)
  Receive Date: 20041104
  Receipt Date: 20041029
  Transmission Date: 20050328
  Serious: Yes (Death, Other)
  Sender: FDA-Public Use
  Company Number: PHBS2004AT14648

PATIENT
  Age: 58 Year
  Sex: Male

DRUGS (13)
  1. CYCLOSPORINE [Suspect]
     Indication: BONE MARROW TRANSPLANT
     Route: 065
  2. VORICONAZOLE [Concomitant]
     Indication: BRONCHOPULMONARY ASPERGILLOSIS
     Route: 065
  3. VORICONAZOLE [Concomitant]
     Dosage: 400 MG/DAY
     Route: 065
  4. CASPOFUNGIN ^MSD^ [Concomitant]
     Indication: BRONCHOPULMONARY ASPERGILLOSIS
  5. FLUDARABINE [Concomitant]
  6. CYTARABINE [Concomitant]
  7. GRANULOCYTE COLONY STIMULATING FACTOR [Concomitant]
  8. MYLOTARG [Concomitant]
     Indication: LEUKAEMIA RECURRENT
  9. CEFTAZIDIME [Concomitant]
  10. VANCOMYCIN [Concomitant]
  11. NETILMICIN SULFATE [Concomitant]
  12. CASPOFUNGIN [Concomitant]
  13. GEMTUZUMAB OZOGAMICIN [Suspect]

REACTIONS (9)
  - BLOOD CULTURE POSITIVE [None]
  - COMPUTERISED TOMOGRAM ABNORMAL [None]
  - LEUKAEMIA RECURRENT [None]
  - LUNG INFILTRATION [None]
  - PANCYTOPENIA [None]
  - PYREXIA [None]
  - RASH PAPULAR [None]
  - SYSTEMIC MYCOSIS [None]
  - THERAPY NON-RESPONDER [None]
